FAERS Safety Report 5371340-7 (Version None)
Quarter: 2007Q2

REPORT INFORMATION
  Report Type: 
  Country: None (occurrence: None)
  Receive Date: 20070622
  Receipt Date: 20070607
  Transmission Date: 20071010
  Serious: Yes (Death)
  Sender: FDA-Public Use
  Company Number: 157374ISR

PATIENT
  Age: 60 Year
  Sex: Male

DRUGS (1)
  1. CITALOPRAM HYDROBROMIDE [Suspect]
     Indication: DEPRESSION
     Dosage: ?? (20 MG) ??
     Dates: start: 20070307, end: 20070323

REACTIONS (3)
  - COMPLETED SUICIDE [None]
  - INJURY ASPHYXIATION [None]
  - INTENTIONAL SELF-INJURY [None]
